FAERS Safety Report 10627501 (Version 1)
Quarter: 2014Q4

REPORT INFORMATION
  Report Type: Report from Study
  Country: US (occurrence: US)
  Receive Date: 20141205
  Receipt Date: 20141205
  Transmission Date: 20150529
  Serious: Yes (Other)
  Sender: FDA-Public Use
  Company Number: US-ROCHE-1499938

PATIENT

DRUGS (1)
  1. BEVACIZUMAB [Suspect]
     Active Substance: BEVACIZUMAB
     Indication: GLIOBLASTOMA MULTIFORME
     Route: 065

REACTIONS (5)
  - Histology abnormal [Unknown]
  - Necrosis [Unknown]
  - Gliosis [Unknown]
  - Dystrophic calcification [Unknown]
  - Arteriosclerosis [Unknown]
